FAERS Safety Report 5660463-0 (Version None)
Quarter: 2008Q1

REPORT INFORMATION
  Report Type: 
  Country: None (occurrence: None)
  Receive Date: 20080311
  Receipt Date: 20071105
  Transmission Date: 20080703
  Serious: No
  Sender: FDA-Public Use
  Company Number: US-BAYER-200713632BCC

PATIENT
  Age: 78 Year
  Sex: Female
  Weight: 66 kg

DRUGS (6)
  1. ALEVE [Suspect]
     Indication: BACK PAIN
     Dosage: UNIT DOSE: 220 MG
     Route: 048
     Dates: start: 20071031, end: 20071102
  2. HUMULIN R [Concomitant]
  3. AVAPRO [Concomitant]
  4. LEVOXYL [Concomitant]
  5. SYNTHROID [Concomitant]
  6. LOVASTATIN [Concomitant]

REACTIONS (1)
  - HYPERSENSITIVITY [None]
